FAERS Safety Report 10906806 (Version 1)
Quarter: 2015Q1

REPORT INFORMATION
  Report Type: Spontaneous
  Country: DE (occurrence: DE)
  Receive Date: 20150312
  Receipt Date: 20150312
  Transmission Date: 20150721
  Serious: Yes (Hospitalization)
  Sender: FDA-Public Use
  Company Number: DE-UCBSA-2015006657

PATIENT
  Age: 42 Year
  Sex: Female

DRUGS (1)
  1. LEVETIRACETAM UCB [Suspect]
     Active Substance: LEVETIRACETAM
     Indication: LENNOX-GASTAUT SYNDROME
     Dosage: 1500 MG, 2X/DAY (BID) (1500 MG IN THE MORNING AND 1500 MG IN THE EVENING)
     Route: 048

REACTIONS (3)
  - Dysphagia [Unknown]
  - Cerebral disorder [Unknown]
  - Incorrect route of drug administration [Unknown]
